FAERS Safety Report 14208215 (Version 1)
Quarter: 2017Q4

REPORT INFORMATION
  Report Type: Spontaneous
  Country: US (occurrence: US)
  Receive Date: 20171120
  Receipt Date: 20171120
  Transmission Date: 20180321
  Serious: Yes (Hospitalization)
  Sender: FDA-Public Use
  Company Number: None

PATIENT
  Age: 68 Year
  Sex: Female

DRUGS (4)
  1. OXALIPLATIN. [Suspect]
     Active Substance: OXALIPLATIN
     Dosage: ?          OTHER FREQUENCY:EEVERY 2 WEEKS;?
     Route: 041
     Dates: start: 20171113, end: 20171113
  2. FOSAPREPITANT [Concomitant]
     Active Substance: FOSAPREPITANT
  3. 5-FU [Concomitant]
     Active Substance: FLUOROURACIL
  4. LEUCOVORIN. [Concomitant]
     Active Substance: LEUCOVORIN

REACTIONS (1)
  - Paralysis [None]

NARRATIVE: CASE EVENT DATE: 20171115
